FAERS Safety Report 4406527-0 (Version None)
Quarter: 2004Q3

REPORT INFORMATION
  Report Type: 
  Country: None (occurrence: None)
  Receive Date: 20040723
  Receipt Date: 20040203
  Transmission Date: 20050211
  Serious: Yes (Disabling)
  Sender: FDA-Public Use
  Company Number: JP-ROCHE-358422

PATIENT
  Age: 54 Year
  Sex: Female
  Weight: 42 kg

DRUGS (8)
  1. PEG-INTERFERON A-2A (RO 25-8310) [Suspect]
     Indication: HEPATITIS C
     Route: 058
     Dates: start: 20040127, end: 20040630
  2. PEG-INTERFERON A-2A (RO 25-8310) [Suspect]
     Route: 058
     Dates: start: 20040630, end: 20040706
  3. URSODESOXYCHOLIC ACID [Concomitant]
     Indication: HEPATITIS C
     Dosage: FROM BEFORE START OF PEG-INTERFERON ALFA 2A
     Route: 048
  4. ETIZOLAM [Concomitant]
     Route: 048
     Dates: start: 20040131, end: 20040302
  5. LOXOPROFEN SODIUM [Concomitant]
     Dosage: 60 MG TAKEN PRN
     Route: 048
     Dates: start: 20040127
  6. REBAMIPIDE [Concomitant]
     Route: 048
     Dates: start: 20040127, end: 20040302
  7. METOCLOPRAMIDE [Concomitant]
     Route: 048
     Dates: start: 20040203, end: 20040217
  8. BROTIZOLAM [Concomitant]
     Route: 048
     Dates: start: 20040127

REACTIONS (11)
  - ANOREXIA [None]
  - DEPRESSED MOOD [None]
  - HEADACHE [None]
  - INSOMNIA [None]
  - NAUSEA [None]
  - PLATELET COUNT DECREASED [None]
  - PRURITUS [None]
  - RETINAL HAEMORRHAGE [None]
  - RETINAL VEIN OCCLUSION [None]
  - RETINOPATHY [None]
  - WHITE BLOOD CELL COUNT DECREASED [None]
